FAERS Safety Report 20362925 (Version 1)
Quarter: 2022Q1

REPORT INFORMATION
  Report Type: Spontaneous
  Country: SI (occurrence: SI)
  Receive Date: 20220121
  Receipt Date: 20220121
  Transmission Date: 20220423
  Serious: Yes (Life-Threatening, Hospitalization, Other)
  Sender: FDA-Public Use
  Company Number: SI-BoehringerIngelheim-2022-BI-108330

PATIENT
  Age: 82 Year
  Sex: Female

DRUGS (4)
  1. PRADAXA [Suspect]
     Active Substance: DABIGATRAN ETEXILATE MESYLATE
     Indication: Embolism
     Dates: start: 202011
  2. Amlopin [Concomitant]
     Indication: Product used for unknown indication
  3. HYDROCHLOROTHIAZIDE\LOSARTAN POTASSIUM [Concomitant]
     Active Substance: HYDROCHLOROTHIAZIDE\LOSARTAN POTASSIUM
     Indication: Product used for unknown indication
  4. Coryol [Concomitant]
     Indication: Product used for unknown indication

REACTIONS (3)
  - Ischaemic stroke [Recovered/Resolved]
  - Laryngeal oedema [Recovered/Resolved]
  - Muscle spasms [Unknown]
